FAERS Safety Report 15107124 (Version 1)
Quarter: 2018Q3

REPORT INFORMATION
  Report Type: Spontaneous
  Country: US (occurrence: US)
  Receive Date: 20180704
  Receipt Date: 20180704
  Transmission Date: 20181010
  Serious: No
  Sender: FDA-Public Use
  Company Number: US-LEO PHARMA-309696

PATIENT
  Age: 78 Year
  Sex: Female
  Weight: 57.14 kg

DRUGS (1)
  1. PROTOPIC [Suspect]
     Active Substance: TACROLIMUS
     Indication: RASH
     Dosage: SMALL AMOUNT, SINGLE
     Route: 061
     Dates: start: 20180619, end: 20180619

REACTIONS (4)
  - Condition aggravated [Unknown]
  - Application site pain [Recovered/Resolved]
  - Product administered at inappropriate site [Unknown]
  - Allergic reaction to excipient [Unknown]

NARRATIVE: CASE EVENT DATE: 201806
